FAERS Safety Report 20168905 (Version 1)
Quarter: 2021Q4

REPORT INFORMATION
  Report Type: Report from Study
  Country: US (occurrence: US)
  Receive Date: 20211210
  Receipt Date: 20211210
  Transmission Date: 20220303
  Serious: Yes (Other)
  Sender: FDA-Public Use
  Company Number: US-ABBVIE-21K-163-4190847-00

PATIENT
  Sex: Female

DRUGS (2)
  1. HUMIRA [Suspect]
     Active Substance: ADALIMUMAB
     Indication: Product used for unknown indication
     Route: 058
  2. MODERNA COVID-19 VACCINE [Concomitant]
     Active Substance: ELASOMERAN
     Indication: COVID-19 immunisation
     Route: 030

REACTIONS (7)
  - Ovarian cyst [Unknown]
  - Thyroid cancer [Unknown]
  - Condition aggravated [Unknown]
  - Onycholysis [Unknown]
  - Arthralgia [Not Recovered/Not Resolved]
  - Psoriasis [Unknown]
  - Rash [Unknown]
